FAERS Safety Report 24594788 (Version 1)
Quarter: 2024Q4

REPORT INFORMATION
  Report Type: Spontaneous
  Country: CN (occurrence: CN)
  Receive Date: 20241108
  Receipt Date: 20241108
  Transmission Date: 20250114
  Serious: Yes (Hospitalization, Other)
  Sender: SANOFI AVENTIS
  Company Number: CN-SA-2024SA321918

PATIENT
  Age: 62 Year
  Sex: Male
  Weight: 65 kg

DRUGS (1)
  1. PLAVIX [Suspect]
     Active Substance: CLOPIDOGREL BISULFATE
     Dosage: 300 MG, QD (MANUFACTURE LOT #FA1420DOSE300.000000DOSE UNITMGNUMBER OF USE1DAY NUMBER OF USE1ROUTE OF
     Route: 048
     Dates: start: 20241024, end: 20241024

REACTIONS (3)
  - Face oedema [Recovered/Resolved]
  - Anaphylactic reaction [Recovered/Resolved]
  - Rash pruritic [Recovered/Resolved]

NARRATIVE: CASE EVENT DATE: 20241024
